FAERS Safety Report 23846519 (Version 3)
Quarter: 2024Q2

REPORT INFORMATION
  Report Type: Report from Study
  Country: CA (occurrence: CA)
  Receive Date: 20240513
  Receipt Date: 20240613
  Transmission Date: 20240716
  Serious: Yes (Hospitalization, Other)
  Sender: FDA-Public Use
  Company Number: CA-TAKEDA-2024TUS042408

PATIENT
  Age: 19 Year
  Sex: Male

DRUGS (7)
  1. VEDOLIZUMAB [Suspect]
     Active Substance: VEDOLIZUMAB
     Indication: Colitis ulcerative
     Dosage: 300 MILLIGRAM
     Route: 042
     Dates: start: 20240123
  2. VEDOLIZUMAB [Suspect]
     Active Substance: VEDOLIZUMAB
     Dosage: 300 MILLIGRAM
     Route: 042
  3. VEDOLIZUMAB [Suspect]
     Active Substance: VEDOLIZUMAB
     Dosage: 300 MILLIGRAM, Q4WEEKS
     Route: 042
     Dates: start: 20240605
  4. ASPIRIN [Concomitant]
     Active Substance: ASPIRIN
     Dosage: 4 GRAM
     Dates: start: 20230915
  5. PENTASA [Concomitant]
     Active Substance: MESALAMINE
     Dosage: 4 GRAM, QD
     Dates: start: 202309
  6. Salofalk [Concomitant]
     Indication: Enema administration
     Dosage: UNK
     Dates: start: 20231201
  7. PREDNISONE [Concomitant]
     Active Substance: PREDNISONE
     Dosage: UNK UNK, QD
     Dates: start: 20231208

REACTIONS (8)
  - Clostridium difficile colitis [Unknown]
  - Large intestinal stenosis [Unknown]
  - Anal abscess [Unknown]
  - Anal fistula [Unknown]
  - Large intestine polyp [Unknown]
  - Weight decreased [Unknown]
  - Intestinal mass [Unknown]
  - Off label use [Unknown]

NARRATIVE: CASE EVENT DATE: 20240605
